FAERS Safety Report 20847115 (Version 1)
Quarter: 2022Q2

REPORT INFORMATION
  Report Type: Spontaneous
  Country: US (occurrence: US)
  Receive Date: 20220519
  Receipt Date: 20220519
  Transmission Date: 20220721
  Serious: No
  Sender: FDA-Public Use
  Company Number: US-Accord-238035

PATIENT
  Sex: Female
  Weight: 102.06 kg

DRUGS (3)
  1. QUETIAPINE FUMARATE [Suspect]
     Active Substance: QUETIAPINE FUMARATE
     Indication: Paranoia
     Dosage: STRENGTH: 25MG / TWICE A DAY
     Route: 048
     Dates: start: 20210901
  2. LAMICTAL [Concomitant]
     Active Substance: LAMOTRIGINE
     Dosage: STRENGTH: 100MG
     Route: 048
  3. Symbalta [Concomitant]
     Dosage: STRENGTH: 60MG TWICE A DAY

REACTIONS (1)
  - Somnolence [Unknown]
